FAERS Safety Report 24630910 (Version 2)
Quarter: 2024Q4

REPORT INFORMATION
  Report Type: Spontaneous
  Country: US (occurrence: US)
  Receive Date: 20241118
  Receipt Date: 20241205
  Transmission Date: 20250114
  Serious: No
  Sender: INCYTE
  Company Number: US-INCYTE CORPORATION-2024IN011877

PATIENT

DRUGS (1)
  1. JAKAFI [Suspect]
     Active Substance: RUXOLITINIB
     Indication: Myelofibrosis
     Dosage: 20 MILLIGRAM, QD
     Route: 048
     Dates: start: 201802

REACTIONS (9)
  - Back injury [Recovering/Resolving]
  - Fatigue [Unknown]
  - Muscle strain [Unknown]
  - Fibromyalgia [Recovering/Resolving]
  - Feeling of body temperature change [Unknown]
  - Cold sweat [Unknown]
  - Feeling abnormal [Unknown]
  - Muscular weakness [Unknown]
  - Dehydration [Unknown]
